FAERS Safety Report 8918606 (Version 3)
Quarter: 2014Q2

REPORT INFORMATION
  Report Type: Spontaneous
  Country: US (occurrence: US)
  Receive Date: 20121120
  Receipt Date: 20140527
  Transmission Date: 20141212
  Serious: Yes (Other)
  Sender: FDA-Public Use
  Company Number: US-ASTRAZENECA-2012SE19466

PATIENT
  Age: 18634 Day
  Sex: Female
  Weight: 63 kg

DRUGS (9)
  1. NEXIUM [Suspect]
     Indication: HIATUS HERNIA
     Route: 048
  2. NEXIUM [Suspect]
     Indication: GASTROOESOPHAGEAL REFLUX DISEASE
     Route: 048
  3. NEXIUM [Suspect]
     Indication: OESOPHAGEAL DILATATION
     Route: 048
  4. OMEPRAZOLE [Suspect]
     Route: 048
  5. PEPCID [Concomitant]
  6. PROTONIX [Concomitant]
  7. CITALOPRAM [Concomitant]
     Indication: CRYING
     Route: 048
  8. HYDROCODONE [Concomitant]
     Indication: PAIN IN EXTREMITY
     Dosage: 5 3.25 1 OR 2 Q 4 60 6 HR P
     Route: 048
  9. BENADRYL [Concomitant]

REACTIONS (16)
  - Fall [Not Recovered/Not Resolved]
  - Arthritis [Not Recovered/Not Resolved]
  - Eye pruritus [Unknown]
  - Oropharyngeal pain [Unknown]
  - Gastric disorder [Unknown]
  - Hiatus hernia [Unknown]
  - Pemphigus [Recovered/Resolved]
  - Migraine [Unknown]
  - Blister [Unknown]
  - Gingival pain [Unknown]
  - Dyspepsia [Unknown]
  - Vomiting [Unknown]
  - Eructation [Unknown]
  - Rash [Unknown]
  - Headache [Unknown]
  - Drug dose omission [Unknown]
